FAERS Safety Report 18198971 (Version 1)
Quarter: 2020Q3

REPORT INFORMATION
  Report Type: Spontaneous
  Country: DE (occurrence: DE)
  Receive Date: 20200826
  Receipt Date: 20200826
  Transmission Date: 20201103
  Serious: Yes (Hospitalization)
  Sender: FDA-Public Use
  Company Number: DE-TEVA-2020-DE-1819735

PATIENT
  Age: 3 Year
  Sex: Male
  Weight: 16 kg

DRUGS (1)
  1. LORATADIN 10MG [Suspect]
     Active Substance: LORATADINE
     Indication: ACCIDENTAL EXPOSURE TO PRODUCT BY CHILD
     Dosage: 30 MG
     Route: 048
     Dates: start: 20200328, end: 20200328

REACTIONS (3)
  - Tachycardia [Recovered/Resolved]
  - Hypertension [Recovered/Resolved]
  - Accidental exposure to product by child [Recovered/Resolved]

NARRATIVE: CASE EVENT DATE: 20200328
